FAERS Safety Report 4854205-6 (Version None)
Quarter: 2005Q4

REPORT INFORMATION
  Report Type: 
  Country: None (occurrence: None)
  Receive Date: 20051213
  Receipt Date: 20051201
  Transmission Date: 20060501
  Serious: Yes (Other)
  Sender: FDA-Public Use
  Company Number: 2005157501

PATIENT
  Age: 48 Year
  Sex: Female

DRUGS (3)
  1. NORVASC [Suspect]
     Indication: HYPERTENSION
     Dosage: 5 MG (5 MG, 1 IN 1 D), ORAL
     Route: 048
  2. VALSARTAN [Concomitant]
  3. TOPROL (METOPROLOL) [Concomitant]

REACTIONS (6)
  - BLOOD PRESSURE INCREASED [None]
  - FATIGUE [None]
  - HYPERTROPHIC CARDIOMYOPATHY [None]
  - PERICARDIAL EFFUSION [None]
  - PHARMACEUTICAL PRODUCT COMPLAINT [None]
  - WEIGHT INCREASED [None]
